FAERS Safety Report 8408026-8 (Version None)
Quarter: 2012Q2

REPORT INFORMATION
  Report Type: 
  Country: None (occurrence: None)
  Receive Date: 20120604
  Receipt Date: 20120524
  Transmission Date: 20120825
  Serious: Yes (Hospitalization, Disabling, Other)
  Sender: FDA-Public Use
  Company Number: US-MERCK-1111USA00989

PATIENT
  Age: 61 Year
  Sex: Female
  Weight: 55 kg

DRUGS (4)
  1. FOSAMAX [Suspect]
     Indication: OSTEOPOROSIS PROPHYLAXIS
     Route: 048
     Dates: start: 20021027, end: 20071217
  2. VITAMIN D (UNSPECIFIED) [Concomitant]
     Route: 065
  3. CALCIUM (UNSPECIFIED) [Concomitant]
     Route: 065
  4. FOSAMAX [Suspect]
     Indication: OSTEOPOROSIS
     Route: 048
     Dates: start: 20021027, end: 20071217

REACTIONS (16)
  - ROTATOR CUFF SYNDROME [None]
  - ONYCHOMYCOSIS [None]
  - SEASONAL AFFECTIVE DISORDER [None]
  - SPINAL OSTEOARTHRITIS [None]
  - FEMUR FRACTURE [None]
  - MYALGIA [None]
  - CARPAL TUNNEL SYNDROME [None]
  - UTERINE PROLAPSE [None]
  - COLONIC POLYP [None]
  - FALL [None]
  - LOW TURNOVER OSTEOPATHY [None]
  - BURSITIS [None]
  - LUMBAR SPINAL STENOSIS [None]
  - OSTEOPENIA [None]
  - STRESS URINARY INCONTINENCE [None]
  - RECTOCELE [None]
